FAERS Safety Report 5948338-0 (Version None)
Quarter: 2008Q4

REPORT INFORMATION
  Report Type: 
  Country: None (occurrence: None)
  Receive Date: 20081111
  Receipt Date: 20081104
  Transmission Date: 20090506
  Serious: Yes (Other)
  Sender: FDA-Public Use
  Company Number: BR-AVENTIS-200819815GDDC

PATIENT
  Age: 47 Year
  Sex: Male
  Weight: 92 kg

DRUGS (7)
  1. DAONIL [Suspect]
     Indication: DIABETES MELLITUS MANAGEMENT
     Dosage: DOSE: 1 TABLET/DAY
     Route: 048
     Dates: start: 20080101
  2. ACOMPLIA [Suspect]
     Indication: DIABETES MELLITUS MANAGEMENT
     Dosage: DOSE: 1 TABLET/DAY (FASTING)
     Route: 048
     Dates: start: 20080701
  3. ACOMPLIA [Suspect]
     Dosage: DOSE: 1 TABLET/DAY (FASTING)
     Route: 048
     Dates: start: 20080701
  4. NIFEDIPINA [Concomitant]
     Indication: HYPERTENSION
     Dosage: DOSE: 2 TABLETS/DAY
     Route: 048
     Dates: start: 20050101
  5. ENALAPRIL MALEATE [Concomitant]
     Indication: HYPERTENSION
     Dosage: DOSE: 2 TABLETS/DAY
     Route: 048
     Dates: start: 20050101
  6. TEGRETOL [Concomitant]
     Indication: CONVULSION
     Dosage: DOSE: 3 TABLETS/DAY
     Route: 048
     Dates: start: 19970101
  7. METFORMINA [Concomitant]
     Indication: DIABETES MELLITUS MANAGEMENT
     Dosage: DOSE: 0.5 TABLET/DAY (EVENING)
     Route: 048
     Dates: start: 20081009

REACTIONS (7)
  - DEPRESSION [None]
  - DRUG INTERACTION [None]
  - FATIGUE [None]
  - HYPOGLYCAEMIA [None]
  - MALAISE [None]
  - PAIN IN EXTREMITY [None]
  - SOCIAL AVOIDANT BEHAVIOUR [None]
